FAERS Safety Report 10025797 (Version 3)
Quarter: 2014Q2

REPORT INFORMATION
  Report Type: Spontaneous
  Country: MX (occurrence: MX)
  Receive Date: 20140320
  Receipt Date: 20140422
  Transmission Date: 20141212
  Serious: Yes (Hospitalization, Other)
  Sender: FDA-Public Use
  Company Number: MX-BRISTOL-MYERS SQUIBB COMPANY-20475042

PATIENT
  Age: 40 Year
  Sex: Female

DRUGS (4)
  1. OHRENCIA [Suspect]
     Indication: RHEUMATOID ARTHRITIS
     Dosage: INTERRUPTED AND RESTARTED-ONGOING
     Route: 042
     Dates: start: 20130513
  2. RANITIDINE [Concomitant]
     Indication: PREMEDICATION
  3. DEXAMETHASONE [Concomitant]
     Indication: PREMEDICATION
  4. DIPHENHYDRAMINE [Concomitant]
     Indication: PREMEDICATION

REACTIONS (5)
  - Respiratory distress [Recovered/Resolved]
  - Laryngeal oedema [Unknown]
  - Cough [Recovered/Resolved]
  - Pruritus [Recovered/Resolved]
  - Rash [Unknown]
